FAERS Safety Report 22377626 (Version 2)
Quarter: 2023Q2

REPORT INFORMATION
  Report Type: Report from Study
  Country: NL (occurrence: NL)
  Receive Date: 20230529
  Receipt Date: 20230619
  Transmission Date: 20230722
  Serious: No
  Sender: FDA-Public Use
  Company Number: NL-ABBVIE-4738635

PATIENT
  Sex: Male

DRUGS (35)
  1. CARBIDOPA\LEVODOPA [Suspect]
     Active Substance: CARBIDOPA\LEVODOPA
     Indication: Parkinson^s disease
     Dosage: MD: 13.5 ML; CD: 4.0 ML/H; ED: 1.0 ML
     Route: 050
  2. CARBIDOPA\LEVODOPA [Suspect]
     Active Substance: CARBIDOPA\LEVODOPA
     Dosage: MD: 13.5 ML; CD: 3.8 ML/H; ED: 1.0 ML?DURATION TEXT: REMAINS AT 16 HOURS
     Route: 050
  3. CARBIDOPA\LEVODOPA [Suspect]
     Active Substance: CARBIDOPA\LEVODOPA
     Dosage: MD: 10.5 D: 3.1 ML/H; ED: 1.0 ML
     Route: 050
  4. CARBIDOPA\LEVODOPA [Suspect]
     Active Substance: CARBIDOPA\LEVODOPA
     Dosage: MD: 10.5 ML; CD: 3.5 ML/H; ED: 2.0 ML?DURATION TEXT: REMAINS AT 16 HOURS
     Route: 050
  5. CARBIDOPA\LEVODOPA [Suspect]
     Active Substance: CARBIDOPA\LEVODOPA
     Dosage: MD: 13.5 ML; CD: 3.9 ML/H; ED: 1.0 ML?DURATION TEXT: REMAINS AT 16 HOURS
     Route: 050
  6. CARBIDOPA\LEVODOPA [Suspect]
     Active Substance: CARBIDOPA\LEVODOPA
     Dosage: MD: 13.5 ML; CD: 3.4 ML/H; ED: 1.0 ML
     Route: 050
  7. CARBIDOPA\LEVODOPA [Suspect]
     Active Substance: CARBIDOPA\LEVODOPA
     Dosage: MD: 13.5 ML; CD: 3.4 ML/H; ED: 1.0 ML?DURATION TEXT: REMAINS AT 16 HOURS
     Route: 050
  8. CARBIDOPA\LEVODOPA [Suspect]
     Active Substance: CARBIDOPA\LEVODOPA
     Dosage: MD: 10.5 ML; CD: 3.7 ML/H; ED: 2.0 ML?DURATION TEXT: REMAINS AT 16 HOURS
     Route: 050
  9. CARBIDOPA\LEVODOPA [Suspect]
     Active Substance: CARBIDOPA\LEVODOPA
     Dosage: MD: 13.5 ML; CD: 3.8 ML/H; ED: 1.0 ML
     Route: 050
  10. CARBIDOPA\LEVODOPA [Suspect]
     Active Substance: CARBIDOPA\LEVODOPA
     Dosage: MD: 10.5 D: 3.1 ML/H; ED: 1.0 ML?DURATION TEXT: REMAINS AT 16 HOURS
     Route: 050
  11. CARBIDOPA\LEVODOPA [Suspect]
     Active Substance: CARBIDOPA\LEVODOPA
     Dosage: MD: 13.5 ML; CD: 4.0 ML/H; ED: 1.0 ML?DURATION TEXT: REMAINS AT 16 HOURS
     Route: 050
  12. CARBIDOPA\LEVODOPA [Suspect]
     Active Substance: CARBIDOPA\LEVODOPA
     Dosage: MD: 10.5 ML; CD: 3.7 ML/H; ED: 2.0 ML
     Route: 050
  13. CARBIDOPA\LEVODOPA [Suspect]
     Active Substance: CARBIDOPA\LEVODOPA
     Dosage: MD: 13.5 ML; CD: 4.0 ML/H; ED: 1.0 ML?DURATION TEXT: REMAINS AT 16 HOURS
     Route: 050
  14. CARBIDOPA\LEVODOPA [Suspect]
     Active Substance: CARBIDOPA\LEVODOPA
     Dosage: MD: 10.5 ML; CD: 3.5 ML/H; ED: 2.0 ML
     Route: 050
  15. CARBIDOPA\LEVODOPA [Suspect]
     Active Substance: CARBIDOPA\LEVODOPA
     Dosage: MD: 10.5 D: 3.1 ML/H; ED: 1.0 ML?DURATION TEXT: REMAINS AT 16 HOURS
     Route: 050
  16. CARBIDOPA\LEVODOPA [Suspect]
     Active Substance: CARBIDOPA\LEVODOPA
     Dosage: MD: 13.5 ML; CD: 3.6 ML/H; ED: 1.0 ML
     Route: 050
  17. CARBIDOPA\LEVODOPA [Suspect]
     Active Substance: CARBIDOPA\LEVODOPA
     Dosage: MD: 10.5 ML; CD: 3.3 ML/H; ED: 2.0 ML?DURATION TEXT: REMAINS AT 16 HOURS
     Route: 050
  18. CARBIDOPA\LEVODOPA [Suspect]
     Active Substance: CARBIDOPA\LEVODOPA
     Dosage: MD: 13.5 ML; CD: 3.2 ML/H; ED: 1.0 ML?DURATION TEXT: REMAINS AT 16 HOURS
     Route: 050
  19. CARBIDOPA\LEVODOPA [Suspect]
     Active Substance: CARBIDOPA\LEVODOPA
     Dosage: MD: 13.5 ML; CD: 3.6 ML/H; ED: 1.0 ML?DURATION TEXT: REMAINS AT 16 HOURS
     Route: 050
  20. CARBIDOPA\LEVODOPA [Suspect]
     Active Substance: CARBIDOPA\LEVODOPA
     Dosage: MD: 10.5 ML; CD: 3.5 ML/H; ED: 2.0 ML?DURATION TEXT: REMAINS AT 16 HOURS
     Route: 050
  21. CARBIDOPA\LEVODOPA [Suspect]
     Active Substance: CARBIDOPA\LEVODOPA
     Dosage: MD: 13.5 ML; CD: 3.8 ML/H; ED: 1.0 ML?DURATION TEXT: REMAINS AT 16 HOURS
     Route: 050
  22. CARBIDOPA\LEVODOPA [Suspect]
     Active Substance: CARBIDOPA\LEVODOPA
     Dosage: MD: 13.5 ML; CD: 3.8 ML/H; ED: 1.0 ML?DURATION TEXT: REMAINS AT 16 HOURS
     Route: 050
  23. CARBIDOPA\LEVODOPA [Suspect]
     Active Substance: CARBIDOPA\LEVODOPA
     Dosage: MD: 13.5 ML; CD: 3.4 ML/H; ED: 1.0 ML?DURATION TEXT: REMAINS AT 16 HOURS
     Route: 050
  24. CARBIDOPA\LEVODOPA [Suspect]
     Active Substance: CARBIDOPA\LEVODOPA
     Dosage: MD: 13.5 ML; CD: 3.2 ML/H; ED: 1.0 ML?DURATION TEXT: REMAINS AT 16 HOURS
     Route: 050
  25. CARBIDOPA\LEVODOPA [Suspect]
     Active Substance: CARBIDOPA\LEVODOPA
     Dosage: DURATION TEXT: REMAINS AT 16 HOURS
     Route: 050
     Dates: start: 20221024
  26. CARBIDOPA\LEVODOPA [Suspect]
     Active Substance: CARBIDOPA\LEVODOPA
     Dosage: MD: 13.5 ML; CD: 3.6 ML/H; ED: 1.0 ML?DURATION TEXT: REMAINS AT 16 HOURS
     Route: 050
  27. CARBIDOPA\LEVODOPA [Suspect]
     Active Substance: CARBIDOPA\LEVODOPA
     Dosage: MD: 10.5 ML; CD: 3.7 ML/H; ED: 2.0 ML?DURATION TEXT: REMAINS AT 16 HOURS
     Route: 050
  28. CARBIDOPA\LEVODOPA [Suspect]
     Active Substance: CARBIDOPA\LEVODOPA
     Dosage: MD: 10.5 ML; CD: 3.3 ML/H; ED: 2.0 ML?REMAINS AT 16 HOURS
     Route: 050
  29. POLYETHYLENE GLYCOLS [Suspect]
     Active Substance: POLYETHYLENE GLYCOLS
     Indication: Constipation
     Route: 048
  30. POLYETHYLENE GLYCOLS [Suspect]
     Active Substance: POLYETHYLENE GLYCOLS
     Indication: Constipation
     Route: 048
  31. ROPINIROLE [Concomitant]
     Active Substance: ROPINIROLE
     Indication: Parkinson^s disease
     Route: 048
  32. ROPINIROLE [Concomitant]
     Active Substance: ROPINIROLE
     Indication: Parkinson^s disease
     Route: 048
  33. MAGNESIUM [Concomitant]
     Active Substance: MAGNESIUM
     Indication: Faecal management
  34. ENTACAPONE [Concomitant]
     Active Substance: ENTACAPONE
     Indication: Parkinson^s disease
     Route: 048
  35. ENTACAPONE [Concomitant]
     Active Substance: ENTACAPONE
     Indication: Parkinson^s disease
     Route: 048

REACTIONS (17)
  - Urinary tract infection [Not Recovered/Not Resolved]
  - Emotional disorder [Not Recovered/Not Resolved]
  - Parkinson^s disease [Recovering/Resolving]
  - Dyskinesia [Not Recovered/Not Resolved]
  - Freezing phenomenon [Not Recovered/Not Resolved]
  - Gastrointestinal pain [Not Recovered/Not Resolved]
  - Muscle rigidity [Not Recovered/Not Resolved]
  - Emotional distress [Not Recovered/Not Resolved]
  - On and off phenomenon [Not Recovered/Not Resolved]
  - Speech disorder [Recovering/Resolving]
  - Therapeutic product effect incomplete [Recovering/Resolving]
  - Abnormal faeces [Not Recovered/Not Resolved]
  - Abnormal dreams [Not Recovered/Not Resolved]
  - Poor quality sleep [Recovering/Resolving]
  - Gait disturbance [Not Recovered/Not Resolved]
  - Stoma site inflammation [Not Recovered/Not Resolved]
  - Urinary incontinence [Unknown]

NARRATIVE: CASE EVENT DATE: 20230101
